FAERS Safety Report 19941942 (Version 1)
Quarter: 2021Q4

REPORT INFORMATION
  Report Type: Spontaneous
  Country: US (occurrence: US)
  Receive Date: 20211011
  Receipt Date: 20211011
  Transmission Date: 20220303
  Serious: Yes (Other)
  Sender: FDA-Public Use
  Company Number: 2021A766060

PATIENT
  Sex: Female
  Weight: 77.1 kg

DRUGS (1)
  1. LYNPARZA [Suspect]
     Active Substance: OLAPARIB
     Indication: Ovarian cancer stage IV
     Route: 048
     Dates: start: 201804

REACTIONS (2)
  - Myelodysplastic syndrome [Unknown]
  - Weight increased [Unknown]
